FAERS Safety Report 14354062 (Version 1)
Quarter: 2018Q1

REPORT INFORMATION
  Report Type: Spontaneous
  Country: GB (occurrence: GB)
  Receive Date: 20180105
  Receipt Date: 20180105
  Transmission Date: 20180509
  Serious: Yes (Death)
  Sender: FDA-Public Use
  Company Number: GB-ROCHE-2050772

PATIENT
  Sex: Male

DRUGS (2)
  1. PULMOZYME [Suspect]
     Active Substance: DORNASE ALFA
     Indication: PRODUCT USED FOR UNKNOWN INDICATION
     Dosage: 2.5MG NEBULISER LIQUID AMPOULES TWICE DAILY
     Route: 065
  2. COLOMYCIN [Concomitant]
     Active Substance: COLISTIN
     Dosage: 2 MILLION UNITS TWICE A DAY
     Route: 065

REACTIONS (1)
  - Death [Fatal]
